FAERS Safety Report 8529592-8 (Version None)
Quarter: 2012Q3

REPORT INFORMATION
  Report Type: 
  Country: None (occurrence: None)
  Receive Date: 20120723
  Receipt Date: 20120710
  Transmission Date: 20120928
  Serious: Yes (Other)
  Sender: FDA-Public Use
  Company Number: US-VERTEX PHARMACEUTICALS INC.-AE-2012-010326

PATIENT
  Sex: Male

DRUGS (5)
  1. RIBAVIRIN [Concomitant]
     Dates: start: 20120601
  2. INCIVEK [Suspect]
     Indication: HEPATITIS C
     Route: 048
     Dates: start: 20120323, end: 20120615
  3. PEGASYS [Concomitant]
     Indication: HEPATITIS C
     Dates: start: 20120323
  4. RIBAVIRIN [Concomitant]
     Dates: start: 20120601
  5. RIBAVIRIN [Concomitant]
     Indication: HEPATITIS C
     Dates: start: 20120323

REACTIONS (9)
  - BACK PAIN [None]
  - ARTHRALGIA [None]
  - PRURITUS [None]
  - WHITE BLOOD CELL COUNT DECREASED [None]
  - HAEMOGLOBIN DECREASED [None]
  - DIZZINESS [None]
  - DYSPNOEA [None]
  - GINGIVAL INFECTION [None]
  - FATIGUE [None]
